FAERS Safety Report 7813948-2 (Version None)
Quarter: 2011Q4

REPORT INFORMATION
  Report Type: 
  Country: None (occurrence: None)
  Receive Date: 20111014
  Receipt Date: 20111011
  Transmission Date: 20120403
  Serious: Yes (Other)
  Sender: FDA-Public Use
  Company Number: CA-PFIZER INC-2011215410

PATIENT
  Age: 78 Year
  Sex: Female

DRUGS (4)
  1. XALATAN [Suspect]
     Indication: GLAUCOMA
     Dosage: 1 GTT, 1X/DAY IN BOTH EYES
     Route: 047
  2. ADALAT [Concomitant]
     Indication: HYPERTENSION
     Dosage: 1 DF, 1X/DAY (ONE TABLET A DAY)
  3. ATENOLOL [Concomitant]
     Indication: HYPERTENSION
     Dosage: 1 DF, 1X/DAY (ONE TABLET ONCE A DAY)
  4. SYNTHROID [Concomitant]
     Indication: HYPOTHYROIDISM
     Dosage: 1 DF, 1X/DAY (ONE TABLET ONCE A DAY)
     Dates: start: 20110301

REACTIONS (1)
  - CATARACT [None]
